FAERS Safety Report 10066306 (Version 1)
Quarter: 2014Q2

REPORT INFORMATION
  Report Type: Spontaneous
  Country: DE (occurrence: DE)
  Receive Date: 20140408
  Receipt Date: 20140408
  Transmission Date: 20141212
  Serious: Yes (Hospitalization, Congenital Anomaly)
  Sender: FDA-Public Use
  Company Number: DE-WATSON-2013-25098

PATIENT
  Sex: Female
  Weight: 3.65 kg

DRUGS (1)
  1. SERTRALINE (UNKNOWN) [Suspect]
     Indication: DEPRESSION
     Route: 064

REACTIONS (1)
  - Agitation neonatal [Recovered/Resolved]
